FAERS Safety Report 23904452 (Version 4)
Quarter: 2024Q4

REPORT INFORMATION
  Report Type: Report from Study
  Country: US (occurrence: US)
  Receive Date: 20240527
  Receipt Date: 20241113
  Transmission Date: 20250114
  Serious: Yes (Other)
  Sender: ABBVIE
  Company Number: US-ABBVIE-5770560

PATIENT
  Sex: Female

DRUGS (4)
  1. SKYRIZI [Suspect]
     Active Substance: RISANKIZUMAB-RZAA
     Indication: Crohn^s disease
     Dosage: END DATE: 2023
     Route: 058
     Dates: start: 20230609
  2. SKYRIZI [Suspect]
     Active Substance: RISANKIZUMAB-RZAA
     Dosage: DRUG END DATE: 2023
     Route: 058
     Dates: start: 20230418
  3. SKYRIZI [Suspect]
     Active Substance: RISANKIZUMAB-RZAA
     Route: 058
     Dates: start: 20230710
  4. ADMELOG [Suspect]
     Active Substance: INSULIN LISPRO
     Indication: Diabetes mellitus
     Route: 065

REACTIONS (16)
  - Arterial repair [Unknown]
  - Rash [Recovered/Resolved]
  - Urinary tract infection [Not Recovered/Not Resolved]
  - Therapeutic response shortened [Unknown]
  - Influenza like illness [Recovered/Resolved]
  - Back pain [Unknown]
  - Balance disorder [Not Recovered/Not Resolved]
  - Kidney infection [Unknown]
  - Renal disorder [Unknown]
  - Crohn^s disease [Unknown]
  - Nausea [Unknown]
  - Hypertension [Unknown]
  - Blood potassium decreased [Unknown]
  - Palpitations [Unknown]
  - Diabetes mellitus [Unknown]
  - Hyperhidrosis [Unknown]
